FAERS Safety Report 9861872 (Version 1)
Quarter: 2014Q1

REPORT INFORMATION
  Report Type: Spontaneous
  Country: PR (occurrence: US)
  Receive Date: 20140203
  Receipt Date: 20140203
  Transmission Date: 20141002
  Serious: No
  Sender: FDA-Public Use
  Company Number: PR-PFIZER INC-2014028381

PATIENT
  Age: 23 Year
  Sex: Female

DRUGS (1)
  1. FLECTOR [Suspect]
     Dosage: UNK

REACTIONS (1)
  - Hypersensitivity [Unknown]
